FAERS Safety Report 9125677 (Version 1)
Quarter: 2013Q1

REPORT INFORMATION
  Report Type: Spontaneous
  Country: US (occurrence: US)
  Receive Date: 20130227
  Receipt Date: 20130227
  Transmission Date: 20140127
  Serious: No
  Sender: FDA-Public Use
  Company Number: US-ASTRAZENECA-2013SE05564

PATIENT
  Age: 66 Year
  Sex: Male

DRUGS (4)
  1. BRILINTA [Suspect]
     Indication: PLATELET DISORDER
     Dosage: UNKNOWN DOSE BID
     Route: 048
     Dates: start: 20130110
  2. LISINOPRIL + HYDROCHLOROTHIAZIDE [Suspect]
     Dosage: 20 MG -25 MG, BID
     Route: 048
  3. ASPIRIN [Concomitant]
  4. INSULIN [Concomitant]
     Indication: TYPE 2 DIABETES MELLITUS

REACTIONS (3)
  - Skin wrinkling [Unknown]
  - Skin exfoliation [Unknown]
  - Sunburn [Unknown]
